FAERS Safety Report 9845341 (Version 2)
Quarter: 2014Q1

REPORT INFORMATION
  Report Type: Spontaneous
  Country: FR (occurrence: FR)
  Receive Date: 20140127
  Receipt Date: 20140127
  Transmission Date: 20141002
  Serious: Yes (Other)
  Sender: FDA-Public Use
  Company Number: FR-009507513-1312FRA006145

PATIENT
  Age: 39 Year
  Sex: Female
  Weight: 50 kg

DRUGS (1)
  1. NEXPLANON [Suspect]
     Indication: PRODUCT USED FOR UNKNOWN INDICATION
     Dosage: UNK
     Route: 058
     Dates: start: 20131129, end: 20131216

REACTIONS (5)
  - Pain in extremity [Recovered/Resolved]
  - Surgery [Unknown]
  - Device dislocation [Recovered/Resolved]
  - General anaesthesia [Unknown]
  - Oedema peripheral [Recovered/Resolved]
